FAERS Safety Report 5870807-2 (Version None)
Quarter: 2008Q3

REPORT INFORMATION
  Report Type: 
  Country: None (occurrence: None)
  Receive Date: 20080829
  Receipt Date: 20080620
  Transmission Date: 20090109
  Serious: No
  Sender: FDA-Public Use
  Company Number: US022234

PATIENT
  Age: 54 Year
  Sex: Male
  Weight: 136.0791 kg

DRUGS (10)
  1. FENTORA [Suspect]
     Indication: NEUROPATHY PERIPHERAL
     Dosage: 400 UG 1600UG TO 2400UG DAILY (400 UCG Q4-6 HOURS) BUCCAL
     Route: 002
     Dates: start: 20070701, end: 20080101
  2. OXYCONTIN [Concomitant]
  3. OXYCODONE HCL [Concomitant]
  4. PROVIGIL [Concomitant]
  5. KEPPRA [Concomitant]
  6. NAMENDA [Concomitant]
  7. TRICOR [Concomitant]
  8. LEXAPRO [Concomitant]
  9. TOPROL-XL [Concomitant]
  10. DEMADEX [Concomitant]

REACTIONS (12)
  - APPLICATION SITE IRRITATION [None]
  - APPLICATION SITE ULCER [None]
  - APTYALISM [None]
  - DRUG INEFFECTIVE [None]
  - DRUG PRESCRIBING ERROR [None]
  - DYSGEUSIA [None]
  - GINGIVAL PAIN [None]
  - GINGIVITIS [None]
  - HERPES SIMPLEX [None]
  - MOUTH ULCERATION [None]
  - ORAL DISCOMFORT [None]
  - PHARMACEUTICAL PRODUCT COMPLAINT [None]
